FAERS Safety Report 12830248 (Version 3)
Quarter: 2019Q2

REPORT INFORMATION
  Report Type: Spontaneous
  Country: US (occurrence: US)
  Receive Date: 20161007
  Receipt Date: 20190402
  Transmission Date: 20190711
  Serious: No
  Sender: FDA-Public Use
  Company Number: US-SA-2016SA160563

PATIENT
  Age: 54 Year
  Sex: Female

DRUGS (10)
  1. GRALISE [Concomitant]
     Active Substance: GABAPENTIN
     Dosage: UNK
  2. KEPPRA [Concomitant]
     Active Substance: LEVETIRACETAM
     Dosage: UNK
  3. TOPAMAX [Concomitant]
     Active Substance: TOPIRAMATE
     Dosage: UNK
  4. ASCORBIC ACID. [Concomitant]
     Active Substance: ASCORBIC ACID
     Dosage: UNK
  5. ONFI [Concomitant]
     Active Substance: CLOBAZAM
     Dosage: UNK
  6. OXYCODONE [Concomitant]
     Active Substance: OXYCODONE
     Dosage: UNK
  7. MIRAPEX [Concomitant]
     Active Substance: PRAMIPEXOLE DIHYDROCHLORIDE
     Dosage: UNK
  8. MOBIC [Concomitant]
     Active Substance: MELOXICAM
     Dosage: UNK
  9. AUBAGIO [Suspect]
     Active Substance: TERIFLUNOMIDE
     Indication: MULTIPLE SCLEROSIS
     Dosage: 1 DF,QD
     Route: 048
     Dates: start: 20140603
  10. LEXAPRO [Concomitant]
     Active Substance: ESCITALOPRAM OXALATE
     Dosage: UNK

REACTIONS (7)
  - Pain [Unknown]
  - Vomiting [Unknown]
  - Fatigue [Unknown]
  - Hepatic enzyme increased [Unknown]
  - Depression [Unknown]
  - Balance disorder [Unknown]
  - Alopecia [Unknown]

NARRATIVE: CASE EVENT DATE: 201604
